FAERS Safety Report 6035166-3 (Version None)
Quarter: 2009Q1

REPORT INFORMATION
  Report Type: 
  Country: None (occurrence: None)
  Receive Date: 20090112
  Receipt Date: 20090105
  Transmission Date: 20090719
  Serious: Yes (Other)
  Sender: FDA-Public Use
  Company Number: IT-ROXANE LABORATORIES, INC.-2009-RO-00009RO

PATIENT
  Age: 5 Year

DRUGS (8)
  1. AZATHIOPRINE [Suspect]
     Indication: COLITIS ULCERATIVE
     Route: 048
     Dates: start: 20040101
  2. PREDNISONE TAB [Suspect]
     Indication: COLITIS ULCERATIVE
     Route: 042
  3. PREDNISONE TAB [Suspect]
     Route: 048
  4. PREDNISONE TAB [Suspect]
     Route: 048
  5. PREDNISONE TAB [Suspect]
     Route: 048
  6. PREDNISONE TAB [Suspect]
     Route: 048
  7. MESALAMINE [Suspect]
     Indication: COLITIS ULCERATIVE
     Route: 048
     Dates: start: 20040101, end: 20060501
  8. MESALAMINE [Suspect]
     Route: 048
     Dates: start: 20060801

REACTIONS (1)
  - COLITIS ULCERATIVE [None]
